FAERS Safety Report 8419301-5 (Version None)
Quarter: 2012Q2

REPORT INFORMATION
  Report Type: 
  Country: None (occurrence: None)
  Receive Date: 20120607
  Receipt Date: 20120525
  Transmission Date: 20120825
  Serious: Yes (Death)
  Sender: FDA-Public Use
  Company Number: FR-ALEXION-A201200795

PATIENT
  Sex: Female

DRUGS (3)
  1. SOLIRIS [Suspect]
     Dosage: 1200 MG, Q2W
     Route: 042
  2. PREDNISONE TAB [Suspect]
     Dosage: 1 MG, QD
     Route: 048
     Dates: start: 20120323, end: 20120410
  3. SOLIRIS [Suspect]
     Indication: GLOMERULONEPHRITIS MEMBRANOPROLIFERATIVE
     Dosage: 900 MG, QW
     Route: 042
     Dates: start: 20120229, end: 20120323

REACTIONS (4)
  - ERYSIPELAS [None]
  - ESCHERICHIA BACTERAEMIA [None]
  - SEPTIC SHOCK [None]
  - AGRANULOCYTOSIS [None]
